FAERS Safety Report 4828011-2 (Version None)
Quarter: 2005Q4

REPORT INFORMATION
  Report Type: 
  Country: None (occurrence: None)
  Receive Date: 20051115
  Receipt Date: 20051108
  Transmission Date: 20060501
  Serious: Yes (Other)
  Sender: FDA-Public Use
  Company Number: US-BRISTOL-MYERS SQUIBB COMPANY-13175138

PATIENT
  Sex: Female

DRUGS (7)
  1. ESTRACE [Suspect]
     Indication: HORMONE REPLACEMENT THERAPY
  2. ESTRADIOL INJ [Suspect]
     Indication: HORMONE REPLACEMENT THERAPY
  3. PREMPRO [Suspect]
     Indication: HORMONE REPLACEMENT THERAPY
  4. PROVERA [Suspect]
     Indication: HORMONE REPLACEMENT THERAPY
  5. PREMARIN [Suspect]
     Indication: HORMONE REPLACEMENT THERAPY
  6. ESTRATEST [Suspect]
     Indication: HORMONE REPLACEMENT THERAPY
  7. MEDROXYPROGESTERONE ACETATE [Suspect]
     Indication: HORMONE REPLACEMENT THERAPY

REACTIONS (1)
  - BREAST CANCER [None]
